FAERS Safety Report 10218869 (Version 1)
Quarter: 2014Q2

REPORT INFORMATION
  Report Type: Spontaneous
  Country: US (occurrence: None)
  Receive Date: 20140604
  Receipt Date: 20140604
  Transmission Date: 20141212
  Serious: No
  Sender: FDA-Public Use
  Company Number: None

PATIENT
  Age: 29 Year
  Sex: Female
  Weight: 52.16 kg

DRUGS (3)
  1. ESCITOLOPRAM 20 FOREST [Suspect]
     Indication: ANXIETY
     Dosage: 3  ONCE DAILY TAKEN BY MOUTH
     Route: 048
  2. ESCITOLOPRAM 20 FOREST [Suspect]
     Indication: PANIC ATTACK
     Dosage: 3  ONCE DAILY TAKEN BY MOUTH
     Route: 048
  3. ESCITOLOPRAM 20 FOREST [Suspect]
     Indication: DEPRESSION
     Dosage: 3  ONCE DAILY TAKEN BY MOUTH
     Route: 048

REACTIONS (7)
  - Nervousness [None]
  - Depression [None]
  - Hyperhidrosis [None]
  - Feeling jittery [None]
  - Nausea [None]
  - Product substitution issue [None]
  - Economic problem [None]
